FAERS Safety Report 8176399-X (Version None)
Quarter: 2012Q1

REPORT INFORMATION
  Report Type: 
  Country: None (occurrence: None)
  Receive Date: 20120301
  Receipt Date: 20120223
  Transmission Date: 20120608
  Serious: Yes (Hospitalization)
  Sender: FDA-Public Use
  Company Number: US-US-EMD SERONO, INC.-7016729

PATIENT
  Sex: Female
  Weight: 97 kg

DRUGS (22)
  1. MS CONTIN [Concomitant]
  2. LOPRESSOR [Concomitant]
     Indication: HYPERTENSION
     Route: 048
  3. LOPRESSOR [Concomitant]
     Route: 048
  4. MAXAIR [Concomitant]
     Indication: ASTHMA
  5. TOPAMAX [Concomitant]
     Indication: MIGRAINE
     Route: 048
  6. IMDUR [Concomitant]
     Indication: ARRHYTHMIA
  7. ASPIRIN [Concomitant]
  8. PHENERGAN [Concomitant]
     Route: 048
  9. PROCARDIA XL [Concomitant]
     Route: 048
  10. MIRAPEX [Concomitant]
     Route: 048
  11. ELAVIL [Concomitant]
     Route: 048
  12. ROZEREM [Concomitant]
     Route: 048
  13. REBIF [Suspect]
     Indication: MULTIPLE SCLEROSIS
     Route: 058
     Dates: start: 20080407
  14. HEPARIN [Concomitant]
     Indication: THROMBOSIS PROPHYLAXIS
  15. NITROGLYCERIN [Concomitant]
     Indication: ARRHYTHMIA
  16. ADVAIR DISKUS 100/50 [Concomitant]
     Indication: ASTHMA
  17. IMDUR [Concomitant]
     Route: 048
  18. ROZEREM [Concomitant]
  19. REGLAN [Concomitant]
     Indication: NAUSEA
  20. PROTONIX [Concomitant]
     Route: 048
  21. TRANSFUSIONS [Concomitant]
     Indication: IRON DEFICIENCY ANAEMIA
  22. SINGULAIR [Concomitant]
     Route: 048

REACTIONS (6)
  - CHEST PAIN [None]
  - VASCULITIS [None]
  - CELLULITIS [None]
  - ABDOMINAL PAIN [None]
  - OVARIAN CYST [None]
  - BLOOD PRESSURE INCREASED [None]
